FAERS Safety Report 4525114-7 (Version None)
Quarter: 2004Q4

REPORT INFORMATION
  Report Type: 
  Country: None (occurrence: None)
  Receive Date: 20041117
  Receipt Date: 20031210
  Transmission Date: 20050328
  Serious: Yes (Other)
  Sender: FDA-Public Use
  Company Number: C2003-3244.01

PATIENT
  Age: 61 Year
  Sex: Male

DRUGS (6)
  1. CLOZAPINE [Suspect]
     Indication: DEPRESSION
     Dosage: 300MG QD, THEN 250MG, QD, ORAL
     Route: 048
     Dates: start: 20030904, end: 20031210
  2. CLOZAPINE [Suspect]
     Indication: SCHIZOPHRENIA
     Dosage: 300MG QD, THEN 250MG, QD, ORAL
     Route: 048
     Dates: start: 20030904, end: 20031210
  3. ESCITALOPRAM OXALATE [Concomitant]
  4. QUETIAPINE FUMARATE [Concomitant]
  5. RISPERIDONE [Concomitant]
  6. CEFUROXIME AXETIL [Concomitant]

REACTIONS (2)
  - LEUKOPENIA [None]
  - NEUTROPENIA [None]
